FAERS Safety Report 8535740-6 (Version None)
Quarter: 2012Q3

REPORT INFORMATION
  Report Type: 
  Country: None (occurrence: None)
  Receive Date: 20120725
  Receipt Date: 20120718
  Transmission Date: 20120928
  Serious: Yes (Death, Hospitalization)
  Sender: FDA-Public Use
  Company Number: FR-BAYER-2012-072682

PATIENT
  Age: 94 Year
  Sex: Male

DRUGS (15)
  1. VANCOMYCIN [Suspect]
     Dosage: UNK
     Dates: start: 20120619, end: 20120620
  2. PERINDOPRIL ERBUMINE [Concomitant]
  3. CITALOPRAM HYDROBROMIDE [Concomitant]
  4. ROCEPHIN [Suspect]
     Dosage: 2 G, BID
     Route: 058
     Dates: start: 20120622
  5. CALCIUM CARBONATE [Concomitant]
  6. ACETAMINOPHEN [Concomitant]
  7. DUPHALAC [Concomitant]
  8. NITROGLYCERIN [Concomitant]
  9. MEMANTINE HYDROCHLORIDE [Concomitant]
  10. RIFADIN [Suspect]
     Dosage: 600 MG, UNK
     Route: 048
     Dates: start: 20120622
  11. TAZOBACTAM [Suspect]
     Dosage: UNK
     Dates: start: 20120619, end: 20120622
  12. IMOVANE [Concomitant]
  13. CIPROFLOXACIN HYDROCHLORIDE [Suspect]
     Dosage: UNK
     Route: 048
     Dates: start: 20120622, end: 20120703
  14. CALCIPARINE [Concomitant]
  15. CLONAZEPAM [Concomitant]

REACTIONS (6)
  - PYREXIA [None]
  - RENAL FAILURE [None]
  - RASH MACULO-PAPULAR [None]
  - PIGMENTATION DISORDER [None]
  - INFECTION [None]
  - PRURITUS [None]
